FAERS Safety Report 6017657-4 (Version None)
Quarter: 2008Q4

REPORT INFORMATION
  Report Type: 
  Country: None (occurrence: None)
  Receive Date: 20081223
  Receipt Date: 20081212
  Transmission Date: 20090506
  Serious: Yes (Hospitalization)
  Sender: FDA-Public Use
  Company Number: CA-BAXTER-2008BH012910

PATIENT
  Sex: Female

DRUGS (1)
  1. DIANEAL [Suspect]
     Indication: PERITONEAL DIALYSIS
     Route: 033

REACTIONS (5)
  - BLOOD GLUCOSE DECREASED [None]
  - COMA [None]
  - FALL [None]
  - HEAD INJURY [None]
  - PERITONEAL INFECTION [None]
